FAERS Safety Report 9323958 (Version 1)
Quarter: 2013Q2

REPORT INFORMATION
  Report Type: Spontaneous
  Country: US (occurrence: US)
  Receive Date: 20130603
  Receipt Date: 20130603
  Transmission Date: 20140414
  Serious: Yes (Other)
  Sender: FDA-Public Use
  Company Number: US-JNJFOC-20130403413

PATIENT
  Age: 52 Year
  Sex: Male
  Weight: 92.99 kg

DRUGS (4)
  1. BENADRYL ALLERGY ULTRATAB [Suspect]
     Indication: SLEEP DISORDER THERAPY
     Dosage: 1 PER DAY IN THE AM WITH FOOD
     Route: 048
     Dates: start: 20130328, end: 20130418
  2. BENADRYL ALLERGY ULTRATAB [Suspect]
     Indication: MULTIPLE ALLERGIES
     Dosage: 1 PER DAY IN THE AM WITH FOOD
     Route: 048
     Dates: start: 20130328, end: 20130418
  3. EXCEDRIN NOS [Concomitant]
     Indication: PAIN
     Route: 065
  4. VITAMIN [Concomitant]
     Indication: MEDICAL DIET
     Dosage: DAILY FROM 40 YEARS
     Route: 065

REACTIONS (3)
  - Haemorrhage [Recovered/Resolved]
  - Haematochezia [Not Recovered/Not Resolved]
  - Drug ineffective for unapproved indication [Unknown]
